FAERS Safety Report 24278498 (Version 1)
Quarter: 2024Q3

REPORT INFORMATION
  Report Type: Spontaneous
  Country: GB (occurrence: GB)
  Receive Date: 20240903
  Receipt Date: 20240903
  Transmission Date: 20241016
  Serious: Yes (Death, Other)
  Sender: OTSUKA
  Company Number: GB-OTSUKA-2024_024314

PATIENT
  Age: 69 Year

DRUGS (1)
  1. ABILIFY MAINTENA [Suspect]
     Active Substance: ARIPIPRAZOLE
     Indication: Product used for unknown indication
     Dosage: 400 MG EVERY 4 WEEKS
     Route: 065

REACTIONS (1)
  - Death [Fatal]
